FAERS Safety Report 16498595 (Version 1)
Quarter: 2019Q2

REPORT INFORMATION
  Report Type: Spontaneous
  Country: JP (occurrence: JP)
  Receive Date: 20190629
  Receipt Date: 20190629
  Transmission Date: 20190711
  Serious: Yes (Hospitalization, Other)
  Sender: FDA-Public Use
  Company Number: PHJP2019JP004952

PATIENT
  Age: 29 Year
  Sex: Female

DRUGS (1)
  1. ILARIS [Suspect]
     Active Substance: CANAKINUMAB
     Indication: TUMOUR NECROSIS FACTOR RECEPTOR-ASSOCIATED PERIODIC SYNDROME
     Dosage: 300 MG, UNK
     Route: 058
     Dates: start: 20190116

REACTIONS (6)
  - Gene mutation [Unknown]
  - Autoimmune disorder [Unknown]
  - Herpes zoster [Unknown]
  - Peritonitis [Recovered/Resolved]
  - Treatment failure [Recovered/Resolved]
  - Tumour necrosis factor receptor-associated periodic syndrome [Unknown]

NARRATIVE: CASE EVENT DATE: 201904
